FAERS Safety Report 9553237 (Version 2)
Quarter: 2014Q3

REPORT INFORMATION
  Report Type: Spontaneous
  Country: US (occurrence: None)
  Receive Date: 20130916
  Receipt Date: 20140915
  Transmission Date: 20150326
  Serious: Yes (Other)
  Sender: FDA-Public Use
  Company Number: JPI-P-021759

PATIENT
  Age: 42 Year
  Sex: Female
  Weight: 53.2 kg

DRUGS (17)
  1. ZONISAMIDE (ZONISAMIDE) UNKNOWN [Suspect]
     Active Substance: ZONISAMIDE
     Indication: VENOUS OCCLUSION
     Dosage: 100 MG (100 MG, 1 IN 1 D), ORAL
     Route: 048
     Dates: start: 20120507, end: 20120517
  2. HYDROCORTISONE. [Concomitant]
     Active Substance: HYDROCORTISONE
  3. PRENATAL VITAMIN (ASCORBIC ACID, CALCIUM PANTOTHENATE, CYANOCOBALAMIN, ERGOCALCIFEROL, NICOTINAMIDE, RETINOL PALMITATE, RIBOFLAVIN, THIAMINE MONONITRATE) [Concomitant]
  4. ALBUTEROL SULFATE (SALBUTAMOL SULFATE) [Concomitant]
     Active Substance: ALBUTEROL SULFATE
  5. ADDERALL [Concomitant]
     Active Substance: AMPHETAMINE ASPARTATE\AMPHETAMINE SULFATE\DEXTROAMPHETAMINE SACCHARATE\DEXTROAMPHETAMINE SULFATE
  6. AMPHETAMINE [Concomitant]
     Active Substance: AMPHETAMINE
  7. TRIAMCINOLONE [Concomitant]
     Active Substance: TRIAMCINOLONE
  8. ZONISAMIDE (ZONISAMIDE) UNKNOWN [Suspect]
     Active Substance: ZONISAMIDE
     Indication: VENOUS OCCLUSION
     Route: 048
     Dates: start: 20120507, end: 20120517
  9. LEVOTHYROXINE [Concomitant]
     Active Substance: LEVOTHYROXINE
  10. NITROGLYCERIN (GLYCERYL TRINITRATE) [Concomitant]
  11. LIPID MODIFYING AGENTS (CHOLESTEROL REDUCERS) [Concomitant]
  12. HYDROCODONE [Concomitant]
     Active Substance: HYDROCODONE
  13. AMPHETAMINE ASPARTATE, AMPHETAMINE SULFATE, DEXTROAMPHETAMINE SACCHARA [Concomitant]
  14. XYREM [Suspect]
     Active Substance: SODIUM OXYBATE
     Indication: NARCOLEPSY
     Dosage: 4.5 GM (2.25 GM, 2 IN 1 D), ORAL
     Route: 048
     Dates: start: 20120525, end: 20120531
  15. WARFARIN SODIUM. [Concomitant]
     Active Substance: WARFARIN SODIUM
  16. ATORVASTATIN CALCIUM. [Concomitant]
     Active Substance: ATORVASTATIN CALCIUM
  17. CHOLESTEROL MEDICATION (CHOLESTEROL0AND TRIGLYCERIDE REDUCERS) [Concomitant]

REACTIONS (49)
  - Poor peripheral circulation [None]
  - Eye haemorrhage [None]
  - Insomnia [None]
  - Weight decreased [None]
  - Abdominal pain upper [None]
  - Hypoaesthesia [None]
  - Feeling cold [None]
  - Initial insomnia [None]
  - Musculoskeletal chest pain [None]
  - Decreased appetite [None]
  - Restlessness [None]
  - Periorbital haematoma [None]
  - Dizziness [None]
  - Muscle tightness [None]
  - Skin discolouration [None]
  - Cholelithiasis [None]
  - Muscular weakness [None]
  - Feeling abnormal [None]
  - Contusion [None]
  - Dysphagia [None]
  - Abdominal pain [None]
  - Abnormal dreams [None]
  - Drug administration error [None]
  - Skin tightness [None]
  - Anxiety [None]
  - Screaming [None]
  - Rash [None]
  - Breast atrophy [None]
  - Pain in extremity [None]
  - Headache [None]
  - Dysgeusia [None]
  - Paraesthesia [None]
  - Muscle spasms [None]
  - Agitation [None]
  - Condition aggravated [None]
  - Gait disturbance [None]
  - Drug ineffective [None]
  - Hypotonia [None]
  - Cyanosis [None]
  - Rash pruritic [None]
  - Gastrointestinal pain [None]
  - Back pain [None]
  - Fatigue [None]
  - Irritability [None]
  - Dry mouth [None]
  - Exophthalmos [None]
  - Tremor [None]
  - Nausea [None]
  - Somnolence [None]

NARRATIVE: CASE EVENT DATE: 2012
